FAERS Safety Report 22236629 (Version 1)
Quarter: 2023Q2

REPORT INFORMATION
  Report Type: Spontaneous
  Country: JP (occurrence: JP)
  Receive Date: 20230420
  Receipt Date: 20230420
  Transmission Date: 20230721
  Serious: Yes (Hospitalization, Other)
  Sender: FDA-Public Use
  Company Number: JP-PAIPHARMA-2023-JP-000142

PATIENT
  Age: 60 Year
  Sex: Female

DRUGS (3)
  1. ESCITALOPRAM [Suspect]
     Active Substance: ESCITALOPRAM OXALATE
     Indication: Depression
     Dosage: 20 MG DAILY
  2. CELECOXIB [Suspect]
     Active Substance: CELECOXIB
     Indication: Spondylolisthesis
     Dosage: 200 MG DAILY
  3. TRAZODONE [Suspect]
     Active Substance: TRAZODONE HYDROCHLORIDE
     Indication: Depression
     Dosage: 75 MG DAILY

REACTIONS (2)
  - Drug interaction [Recovered/Resolved]
  - Activation syndrome [Recovered/Resolved]
